FAERS Safety Report 8152218-2 (Version None)
Quarter: 2012Q1

REPORT INFORMATION
  Report Type: 
  Country: None (occurrence: None)
  Receive Date: 20120214
  Receipt Date: 20120203
  Transmission Date: 20120608
  Serious: Yes (Death, Hospitalization)
  Sender: FDA-Public Use
  Company Number: TCI2011A05956

PATIENT
  Age: 75 Year
  Sex: Male

DRUGS (4)
  1. MIGLITOL [Concomitant]
  2. ACTOS [Suspect]
     Indication: TYPE 2 DIABETES MELLITUS
     Dosage: 15 MG (15 MG, 1 -2) PER ORAL
     Route: 048
     Dates: start: 20081128, end: 20101204
  3. GLUFAST (MITIGLINIDE CALCIUM) [Suspect]
     Indication: TYPE 2 DIABETES MELLITUS
     Dosage: 30 MG (10 MG, 3 IN 1 D), PER ORAL
     Route: 048
     Dates: start: 20100515, end: 20101204
  4. DOXAZOSIN MESYLATE [Concomitant]

REACTIONS (2)
  - LUNG CANCER METASTATIC [None]
  - RESPIRATORY FAILURE [None]
